FAERS Safety Report 7622729-4 (Version None)
Quarter: 2011Q3

REPORT INFORMATION
  Report Type: 
  Country: None (occurrence: None)
  Receive Date: 20110701
  Receipt Date: 20100723
  Transmission Date: 20111222
  Serious: Yes (Other)
  Sender: FDA-Public Use
  Company Number: 7012132

PATIENT
  Age: 35 Year
  Sex: Female

DRUGS (2)
  1. REBIF [Suspect]
     Indication: MULTIPLE SCLEROSIS
     Dates: start: 20090810, end: 20100721
  2. LITHIUM CARBONATE [Concomitant]

REACTIONS (4)
  - SUICIDAL IDEATION [None]
  - MULTIPLE SCLEROSIS [None]
  - DEPRESSION [None]
  - INFLUENZA LIKE ILLNESS [None]
